FAERS Safety Report 5798219-0 (Version None)
Quarter: 2008Q3

REPORT INFORMATION
  Report Type: 
  Country: None (occurrence: None)
  Receive Date: 20080702
  Receipt Date: 20080623
  Transmission Date: 20090109
  Serious: Yes (Life-Threatening, Hospitalization)
  Sender: FDA-Public Use
  Company Number: B0526955A

PATIENT
  Age: 84 Year
  Sex: Female

DRUGS (7)
  1. ARIXTRA [Suspect]
     Indication: PULMONARY EMBOLISM
     Dosage: 7.5MG PER DAY
     Route: 058
     Dates: start: 20080101, end: 20080101
  2. PANTOPRAZOLE SODIUM [Concomitant]
     Route: 048
  3. CORVASAL [Concomitant]
     Route: 048
  4. FUROSEMIDE [Concomitant]
     Route: 065
  5. DIGITALINE NATIVELLE [Concomitant]
     Route: 048
  6. AMLOR [Concomitant]
     Route: 048
  7. POTASSIUM CHLORIDE [Concomitant]
     Route: 048

REACTIONS (6)
  - ALTERED STATE OF CONSCIOUSNESS [None]
  - ANAEMIA [None]
  - HAEMATOMA [None]
  - HYPERCAPNIA [None]
  - SKIN HAEMORRHAGE [None]
  - WOUND [None]
